APPROVED DRUG PRODUCT: CARISOPRODOL
Active Ingredient: CARISOPRODOL
Strength: 350MG
Dosage Form/Route: TABLET;ORAL
Application: A207237 | Product #002 | TE Code: AA
Applicant: MPP PHARMA LLC
Approved: Sep 21, 2020 | RLD: No | RS: No | Type: RX